FAERS Safety Report 6207253-8 (Version None)
Quarter: 2009Q2

REPORT INFORMATION
  Report Type: 
  Country: None (occurrence: None)
  Receive Date: 20090528
  Receipt Date: 20090204
  Transmission Date: 20091009
  Serious: Yes (Hospitalization)
  Sender: FDA-Public Use
  Company Number: FR-PFIZER INC-2009166251

PATIENT
  Sex: Female

DRUGS (10)
  1. SOLU-MEDROL [Suspect]
     Dosage: UNK
     Route: 042
     Dates: start: 20081110, end: 20081113
  2. TRABECTEDIN [Suspect]
     Indication: SARCOMA UTERUS
     Dosage: UNK
     Route: 042
     Dates: start: 20081003, end: 20081113
  3. PRIMPERAN [Suspect]
     Dosage: UNK
     Route: 042
     Dates: start: 20081110, end: 20081113
  4. AUGMENTIN '125' [Suspect]
     Dosage: UNK
     Route: 042
     Dates: start: 20081112, end: 20081116
  5. PREGABALIN [Concomitant]
  6. S_S REBOXETINE [Concomitant]
  7. OLMESARTAN MEDOXOMIL [Concomitant]
  8. RABEPRAZOLE [Concomitant]
  9. FENTANYL-100 [Concomitant]
     Dosage: UNK
     Dates: start: 20081113, end: 20081126
  10. MORPHINE SULFATE [Concomitant]
     Route: 048

REACTIONS (2)
  - HYPOTENSION [None]
  - SOMNOLENCE [None]
